FAERS Safety Report 5671102-7 (Version None)
Quarter: 2008Q1

REPORT INFORMATION
  Report Type: 
  Country: None (occurrence: None)
  Receive Date: 20080318
  Receipt Date: 20080304
  Transmission Date: 20080703
  Serious: Yes (Hospitalization)
  Sender: FDA-Public Use
  Company Number: US-ELI_LILLY_AND_COMPANY-US200801006395

PATIENT
  Age: 71 Year
  Sex: Female
  Weight: 77.551 kg

DRUGS (2)
  1. FORTEO [Suspect]
     Indication: OSTEOPOROSIS
     Dosage: 20 UG, DAILY (1/D)
     Dates: start: 20071201
  2. VITAMIN D [Concomitant]
     Indication: VITAMIN D DECREASED
     Dosage: 50000 U, WEEKLY (1/W)
     Route: 042
     Dates: start: 20071207

REACTIONS (2)
  - LUMBAR VERTEBRAL FRACTURE [None]
  - THORACIC VERTEBRAL FRACTURE [None]
